FAERS Safety Report 10467253 (Version 1)
Quarter: 2014Q3

REPORT INFORMATION
  Report Type: Spontaneous
  Country: JP (occurrence: JP)
  Receive Date: 20140922
  Receipt Date: 20140922
  Transmission Date: 20150326
  Serious: Yes (Hospitalization)
  Sender: FDA-Public Use
  Company Number: PHHY2014JP120181

PATIENT
  Sex: Male

DRUGS (2)
  1. ULTIBRO BREEZHALER [Suspect]
     Active Substance: GLYCOPYRRONIUM\INDACATEROL
     Indication: CHRONIC OBSTRUCTIVE PULMONARY DISEASE
     Dosage: UNK UKN, UNK
     Route: 055
  2. LUNESTA [Concomitant]
     Active Substance: ESZOPICLONE
     Dosage: UNK UKN, UNK
     Route: 048

REACTIONS (2)
  - Pneumothorax [Unknown]
  - Lung disorder [Unknown]

NARRATIVE: CASE EVENT DATE: 20140910
